FAERS Safety Report 25576878 (Version 1)
Quarter: 2025Q3

REPORT INFORMATION
  Report Type: Spontaneous
  Country: US (occurrence: None)
  Receive Date: 20250718
  Receipt Date: 20250718
  Transmission Date: 20251021
  Serious: Yes (Hospitalization)
  Sender: FDA-CTU
  Company Number: None

PATIENT
  Age: 79 Year
  Sex: Male
  Weight: 69.4 kg

DRUGS (1)
  1. LEUPROLIDE ACETATE [Suspect]
     Active Substance: LEUPROLIDE ACETATE
     Dates: end: 20250501

REACTIONS (7)
  - Myocardial infarction [None]
  - Hypertension [None]
  - Hyperlipidaemia [None]
  - Cutaneous B-cell lymphoma [None]
  - Acute kidney injury [None]
  - Hyperglycaemic hyperosmolar nonketotic syndrome [None]
  - Hypotension [None]

NARRATIVE: CASE EVENT DATE: 20250709
